FAERS Safety Report 13911400 (Version 1)
Quarter: 2017Q3

REPORT INFORMATION
  Report Type: Spontaneous
  Country: US (occurrence: US)
  Receive Date: 20170828
  Receipt Date: 20170828
  Transmission Date: 20171127
  Serious: No
  Sender: FDA-Public Use
  Company Number: US-GLAXOSMITHKLINE-US2017132093

PATIENT
  Age: 38 Year
  Sex: Male

DRUGS (1)
  1. LAMICTAL XR [Suspect]
     Active Substance: LAMOTRIGINE
     Indication: BIPOLAR DISORDER
     Dosage: 50 MG, BID
     Route: 048
     Dates: start: 2015

REACTIONS (3)
  - Tremor [Not Recovered/Not Resolved]
  - Product use in unapproved indication [Unknown]
  - Parkinsonism [Unknown]

NARRATIVE: CASE EVENT DATE: 2015
